FAERS Safety Report 9453316 (Version 2)
Quarter: 2013Q4

REPORT INFORMATION
  Report Type: Spontaneous
  Country: US (occurrence: US)
  Receive Date: 20110322
  Receipt Date: 20131114
  Transmission Date: 20140711
  Serious: Yes (Death)
  Sender: FDA-Public Use
  Company Number: US-LUNDBECK-DKLU1067438

PATIENT
  Age: 1 Year
  Sex: Male

DRUGS (6)
  1. SABRIL (FOR ORAL SOLUTION) [Suspect]
     Indication: EPILEPSY
     Route: 048
  2. KEPPRA [Concomitant]
     Indication: PRODUCT USED FOR UNKNOWN INDICATION
  3. ATIVAN [Concomitant]
     Indication: PRODUCT USED FOR UNKNOWN INDICATION
     Route: 050
  4. MIRALAX [Concomitant]
     Indication: PRODUCT USED FOR UNKNOWN INDICATION
  5. ROBINUL [Concomitant]
     Indication: PRODUCT USED FOR UNKNOWN INDICATION
  6. ZONEGRAN [Concomitant]
     Indication: PRODUCT USED FOR UNKNOWN INDICATION

REACTIONS (1)
  - Early infantile epileptic encephalopathy with burst-suppression [Fatal]
